FAERS Safety Report 10562475 (Version 1)
Quarter: 2014Q4

REPORT INFORMATION
  Report Type: Spontaneous
  Country: US (occurrence: None)
  Receive Date: 20141103
  Receipt Date: 20141103
  Transmission Date: 20150529
  Serious: Yes (Other)
  Sender: FDA-Public Use
  Company Number: None

PATIENT
  Age: 31 Year
  Sex: Female
  Weight: 68.49 kg

DRUGS (1)
  1. BUSPIRONE [Suspect]
     Active Substance: BUSPIRONE HYDROCHLORIDE
     Indication: ANXIETY
     Route: 048
     Dates: start: 20141023, end: 20141101

REACTIONS (6)
  - Sleep disorder [None]
  - Dizziness [None]
  - Diarrhoea [None]
  - Confusional state [None]
  - Nausea [None]
  - Headache [None]

NARRATIVE: CASE EVENT DATE: 20141101
